FAERS Safety Report 4643105-2 (Version None)
Quarter: 2005Q2

REPORT INFORMATION
  Report Type: 
  Country: None (occurrence: None)
  Receive Date: 20050421
  Receipt Date: 20050222
  Transmission Date: 20051028
  Serious: Yes (Other)
  Sender: FDA-Public Use
  Company Number: 2005020084

PATIENT
  Age: 76 Year
  Sex: Female

DRUGS (5)
  1. LIPITOR [Suspect]
     Indication: HYPERLIPIDAEMIA
     Dosage: 20 MG (1 IN 1 D), ORAL
     Route: 048
     Dates: start: 20040520, end: 20041228
  2. BEHYD-R. A                 (BENZYLHYDROCHLOROTHIAZIDE, CARBAZOCHROME, [Concomitant]
  3. RIBOFLAVIN TETRABUTYRATE (RIBOFLAVIN TETRABUTYRATE) [Concomitant]
  4. TRANEXAMIC ACID          (TRANEXAMIC ACID) [Concomitant]
  5. METHYLDOPA [Concomitant]

REACTIONS (1)
  - PERIPHERAL COLDNESS [None]
